FAERS Safety Report 11736156 (Version 1)
Quarter: 2015Q4

REPORT INFORMATION
  Report Type: Spontaneous
  Country: US (occurrence: US)
  Receive Date: 20151113
  Receipt Date: 20151113
  Transmission Date: 20160304
  Serious: No
  Sender: FDA-Public Use
  Company Number: US-JNJFOC-20150927491

PATIENT

DRUGS (4)
  1. DOXORUBICIN HYDROCHLORIDE. [Suspect]
     Active Substance: DOXORUBICIN HYDROCHLORIDE
     Indication: BLADDER CANCER
     Route: 042
  2. CISPLATIN. [Suspect]
     Active Substance: CISPLATIN
     Indication: BLADDER CANCER
     Route: 065
  3. VINBLASTIN [Suspect]
     Active Substance: VINBLASTINE
     Indication: BLADDER CANCER
     Route: 065
  4. METHOTREXATE [Suspect]
     Active Substance: METHOTREXATE
     Indication: BLADDER CANCER
     Route: 065

REACTIONS (4)
  - Product use issue [Unknown]
  - Anaemia [Unknown]
  - Off label use [Unknown]
  - Mucosal inflammation [Unknown]
